FAERS Safety Report 18378626 (Version 1)
Quarter: 2020Q4

REPORT INFORMATION
  Report Type: Spontaneous
  Country: US (occurrence: US)
  Receive Date: 20201013
  Receipt Date: 20201013
  Transmission Date: 20210114
  Serious: Yes (Hospitalization)
  Sender: FDA-Public Use
  Company Number: US-ROCHE-2645913

PATIENT
  Sex: Female

DRUGS (5)
  1. ACTEMRA [Suspect]
     Active Substance: TOCILIZUMAB
  2. TYMLOS [Suspect]
     Active Substance: ABALOPARATIDE
     Indication: PRODUCT USED FOR UNKNOWN INDICATION
     Route: 065
  3. ACTEMRA [Suspect]
     Active Substance: TOCILIZUMAB
     Indication: POLYMYALGIA RHEUMATICA
  4. ACTEMRA [Suspect]
     Active Substance: TOCILIZUMAB
  5. ACTEMRA [Suspect]
     Active Substance: TOCILIZUMAB
     Indication: FIBROSIS
     Dosage: STRENGTH 162MG/ 0.9 M ONGOING: YES
     Route: 058
     Dates: start: 20200421

REACTIONS (5)
  - Fatigue [Unknown]
  - Off label use [Unknown]
  - Intentional product use issue [Unknown]
  - Headache [Unknown]
  - Atypical femur fracture [Unknown]
